FAERS Safety Report 6151266-1 (Version None)
Quarter: 2009Q2

REPORT INFORMATION
  Report Type: 
  Country: None (occurrence: None)
  Receive Date: 20090410
  Receipt Date: 20090403
  Transmission Date: 20091009
  Serious: Yes (Hospitalization, Other)
  Sender: FDA-Public Use
  Company Number: IL-ROXANE LABORATORIES, INC.-2009-RO-00337RO

PATIENT
  Age: 52 Year
  Sex: Female

DRUGS (8)
  1. MORPHINE [Suspect]
     Indication: PAIN
     Route: 042
  2. MORPHINE [Suspect]
     Dosage: 1000MG
     Route: 042
  3. MEPERIDINE HCL [Suspect]
     Indication: PAIN
     Dosage: 250MG
     Route: 042
  4. OXYCODONE AND ACETAMINOPHEN [Suspect]
     Indication: PAIN
  5. CHLORPROMAZINE [Suspect]
     Indication: PAIN
     Dosage: 250MG
     Route: 042
  6. PROMETHAZINE [Suspect]
     Indication: PAIN
     Dosage: 250MG
     Route: 042
  7. KETAMINE HCL [Suspect]
     Indication: PAIN
     Dosage: 1000MG
     Route: 042
  8. OXYCODONE HCL [Suspect]
     Indication: PAIN
     Dosage: 160MG

REACTIONS (8)
  - ALLODYNIA [None]
  - BRADYPNOEA [None]
  - DIZZINESS [None]
  - DRUG INEFFECTIVE [None]
  - DYSAESTHESIA [None]
  - HYPERAESTHESIA [None]
  - PAIN [None]
  - SOMNOLENCE [None]
